FAERS Safety Report 15944835 (Version 1)
Quarter: 2019Q1

REPORT INFORMATION
  Report Type: Spontaneous
  Country: US (occurrence: US)
  Receive Date: 20190211
  Receipt Date: 20190211
  Transmission Date: 20190417
  Serious: No
  Sender: FDA-Public Use
  Company Number: US-PERRIGO-18US001462

PATIENT
  Age: 2 Year
  Sex: Male
  Weight: 11.34 kg

DRUGS (1)
  1. IBUPROFEN. [Suspect]
     Active Substance: IBUPROFEN
     Indication: ACCIDENTAL EXPOSURE TO PRODUCT
     Dosage: UNKNOWN, SINGLE
     Route: 048
     Dates: start: 20180208, end: 20180208

REACTIONS (1)
  - Accidental exposure to product [Recovered/Resolved]

NARRATIVE: CASE EVENT DATE: 20180208
